FAERS Safety Report 6572332-2 (Version None)
Quarter: 2010Q1

REPORT INFORMATION
  Report Type: 
  Country: None (occurrence: None)
  Receive Date: 20100205
  Receipt Date: 20100126
  Transmission Date: 20100710
  Serious: Yes (Death)
  Sender: FDA-Public Use
  Company Number: DE-WATSON-2010-01148

PATIENT
  Age: 68 Year
  Sex: Female

DRUGS (2)
  1. HALOPERIDOL (WATSON LABORATORIES) [Suspect]
     Indication: SCHIZOPHRENIA, PARANOID TYPE
     Dosage: 5 MG, UNK
  2. OLANZAPINE [Suspect]
     Indication: SCHIZOPHRENIA, PARANOID TYPE
     Dosage: 15 MG, UNK

REACTIONS (1)
  - PULMONARY EMBOLISM [None]
